FAERS Safety Report 15658878 (Version 2)
Quarter: 2018Q4

REPORT INFORMATION
  Report Type: Spontaneous
  Country: JP (occurrence: JP)
  Receive Date: 20181126
  Receipt Date: 20181214
  Transmission Date: 20190205
  Serious: Yes (Other)
  Sender: FDA-Public Use
  Company Number: JP-009507513-1811JPN002726J

PATIENT

DRUGS (1)
  1. KEYTRUDA [Suspect]
     Active Substance: PEMBROLIZUMAB
     Indication: NON-SMALL CELL LUNG CANCER
     Dosage: UNK
     Route: 041

REACTIONS (13)
  - Hypoaesthesia [Unknown]
  - Pneumonitis [Unknown]
  - Renal impairment [Unknown]
  - Decreased appetite [Unknown]
  - Pruritus [Unknown]
  - Malaise [Unknown]
  - Hepatic function abnormal [Unknown]
  - Rash [Unknown]
  - Infusion related reaction [Unknown]
  - Adrenal insufficiency [Unknown]
  - Stomatitis [Unknown]
  - Hypothyroidism [Unknown]
  - Hyperthyroidism [Unknown]
